FAERS Safety Report 13519526 (Version 1)
Quarter: 2017Q2

REPORT INFORMATION
  Report Type: Report from Study
  Country: US (occurrence: US)
  Receive Date: 20170505
  Receipt Date: 20170505
  Transmission Date: 20170830
  Serious: Yes (Other)
  Sender: FDA-Public Use
  Company Number: GXBR2017US001564

PATIENT
  Sex: Male
  Weight: 61.22 kg

DRUGS (1)
  1. GLATOPA [Suspect]
     Active Substance: GLATIRAMER ACETATE
     Indication: MULTIPLE SCLEROSIS
     Dosage: 20 MG, QD
     Route: 058
     Dates: start: 20170418, end: 20170428

REACTIONS (12)
  - Hypersomnia [Recovering/Resolving]
  - Muscle spasms [Recovering/Resolving]
  - Chills [Recovering/Resolving]
  - Vomiting [Recovered/Resolved]
  - Bradyphrenia [Recovering/Resolving]
  - Hot flush [Recovering/Resolving]
  - Influenza like illness [Unknown]
  - Muscle tightness [Recovering/Resolving]
  - Pain in extremity [Unknown]
  - Insomnia [Unknown]
  - Hyperhidrosis [Recovering/Resolving]
  - Injection site pain [Recovering/Resolving]
